FAERS Safety Report 10185319 (Version 1)
Quarter: 2014Q2

REPORT INFORMATION
  Report Type: Spontaneous
  Country: US (occurrence: US)
  Receive Date: 20140521
  Receipt Date: 20140521
  Transmission Date: 20141212
  Serious: Yes (Death)
  Sender: FDA-Public Use
  Company Number: US-PFIZER INC-2014136195

PATIENT
  Age: 56 Year
  Sex: Female
  Weight: 36.28 kg

DRUGS (1)
  1. SUTENT [Suspect]
     Indication: RENAL CANCER
     Dosage: UNK
     Dates: start: 2009

REACTIONS (2)
  - Disease progression [Fatal]
  - Renal cancer [Fatal]
